FAERS Safety Report 23074402 (Version 2)
Quarter: 2023Q4

REPORT INFORMATION
  Report Type: Spontaneous
  Country: SG (occurrence: SG)
  Receive Date: 20231017
  Receipt Date: 20231109
  Transmission Date: 20240110
  Serious: Yes (Other)
  Sender: FDA-Public Use
  Company Number: SG-BAXTER-2023BAX033063

PATIENT

DRUGS (2)
  1. TISSEEL FIBRIN SEALANT [Suspect]
     Active Substance: FIBRINOGEN HUMAN\THROMBIN HUMAN
     Indication: Tissue sealing
     Route: 065
  2. TISSEEL FIBRIN SEALANT [Suspect]
     Active Substance: FIBRINOGEN HUMAN\THROMBIN HUMAN
     Indication: Tissue sealing
     Route: 065

REACTIONS (7)
  - Cerebrospinal fluid leakage [Recovered/Resolved]
  - Drug ineffective [Unknown]
  - Neck injury [Unknown]
  - Post procedural persistent drain fluid [Unknown]
  - Swelling [Unknown]
  - Product physical consistency issue [Unknown]
  - Dyspnoea [Unknown]
